FAERS Safety Report 18833202 (Version 1)
Quarter: 2021Q1

REPORT INFORMATION
  Report Type: Spontaneous
  Country: DE (occurrence: DE)
  Receive Date: 20210203
  Receipt Date: 20210203
  Transmission Date: 20210419
  Serious: Yes (Other)
  Sender: FDA-Public Use
  Company Number: DE-SUN PHARMACEUTICAL INDUSTRIES LTD-2021R1-276766

PATIENT
  Age: 60 Year
  Sex: Male
  Weight: 86 kg

DRUGS (3)
  1. METHOTREXATE. [Suspect]
     Active Substance: METHOTREXATE
     Indication: PSORIATIC ARTHROPATHY
  2. METHOTREXATE. [Suspect]
     Active Substance: METHOTREXATE
     Indication: PSORIASIS
     Dosage: 15 MILLIGRAM, WEEKLY, FOR MORE THAN 12 MONTHS
     Route: 065
  3. DICLOFENAC?NATRIUM [Concomitant]
     Active Substance: DICLOFENAC SODIUM
     Indication: ARTHRALGIA
     Dosage: 150 MILLIGRAM, DAILY USED WITHOUT MEDICAL SUPERVISION
     Route: 065

REACTIONS (4)
  - Toxicity to various agents [Unknown]
  - Mucosal erosion [Unknown]
  - Skin lesion [Unknown]
  - Gingivitis ulcerative [Unknown]
